FAERS Safety Report 6072969-3 (Version None)
Quarter: 2009Q1

REPORT INFORMATION
  Report Type: 
  Country: None (occurrence: None)
  Receive Date: 20090206
  Receipt Date: 20090126
  Transmission Date: 20090719
  Serious: Yes (Life-Threatening)
  Sender: FDA-Public Use
  Company Number: 2009S1001483

PATIENT
  Age: 10 Year
  Sex: Male

DRUGS (7)
  1. METHOTREXATE [Suspect]
     Indication: BONE SARCOMA
     Dosage: 12000 MG/M**2
  2. CISPLATIN [Concomitant]
  3. DOXORUBICIN HCL [Concomitant]
  4. CISPLATIN [Concomitant]
  5. DOXORUBICIN HCL [Concomitant]
  6. IFOSFAMIDE [Concomitant]
  7. ETOPOSIDE [Concomitant]

REACTIONS (11)
  - ALANINE AMINOTRANSFERASE INCREASED [None]
  - ASPARTATE AMINOTRANSFERASE INCREASED [None]
  - BLOOD POTASSIUM DECREASED [None]
  - BONE SARCOMA [None]
  - DRUG CLEARANCE DECREASED [None]
  - FLUID RETENTION [None]
  - HAEMODIALYSIS [None]
  - HAEMOPERFUSION [None]
  - NEOPLASM RECURRENCE [None]
  - PLEURAL EFFUSION [None]
  - RENAL FAILURE ACUTE [None]
